FAERS Safety Report 7675030-7 (Version None)
Quarter: 2011Q3

REPORT INFORMATION
  Report Type: 
  Country: None (occurrence: None)
  Receive Date: 20110810
  Receipt Date: 20110801
  Transmission Date: 20111222
  Serious: Yes (Hospitalization)
  Sender: FDA-Public Use
  Company Number: US-AMGEN-USASP2011039265

PATIENT
  Age: 50 Year
  Sex: Female

DRUGS (1)
  1. ENBREL [Suspect]
     Indication: RHEUMATOID ARTHRITIS
     Dosage: 25 MG, 2 TIMES/WK
     Dates: start: 20030801, end: 20100501

REACTIONS (5)
  - NECK PAIN [None]
  - DYSPNOEA [None]
  - LUNG CONSOLIDATION [None]
  - MUSCULOSKELETAL PAIN [None]
  - CHEST PAIN [None]
